FAERS Safety Report 7079300-5 (Version None)
Quarter: 2010Q4

REPORT INFORMATION
  Report Type: 
  Country: None (occurrence: None)
  Receive Date: 20101022
  Receipt Date: 20101015
  Transmission Date: 20110411
  Serious: Yes (Hospitalization)
  Sender: FDA-Public Use
  Company Number: 2010SP055120

PATIENT
  Age: 2 Year
  Sex: Female

DRUGS (2)
  1. TEMODAL [Suspect]
     Indication: BRAIN NEOPLASM
     Dosage: 65 MG;QD;PO
     Route: 048
     Dates: start: 20100726, end: 20100730
  2. TOPOTECAN [Suspect]
     Indication: BRAIN NEOPLASM
     Dosage: 0.35 MG;QD;IV
     Route: 042
     Dates: start: 20100726, end: 20100730

REACTIONS (1)
  - FEBRILE BONE MARROW APLASIA [None]
